FAERS Safety Report 8515994-2 (Version None)
Quarter: 2012Q3

REPORT INFORMATION
  Report Type: 
  Country: None (occurrence: None)
  Receive Date: 20120717
  Receipt Date: 20120712
  Transmission Date: 20120928
  Serious: Yes (Other)
  Sender: FDA-Public Use
  Company Number: US-PFIZER INC-2012169378

PATIENT
  Sex: Female
  Weight: 102 kg

DRUGS (10)
  1. PROVERA [Suspect]
     Indication: ENDOMETRIAL HYPERTROPHY
     Dosage: UNK
     Route: 048
     Dates: start: 20100801, end: 20100101
  2. PROVERA [Suspect]
     Indication: ENDOMETRIAL HYPERPLASIA
     Dosage: 10 MG, 1X/DAY
     Route: 048
     Dates: start: 20120712
  3. OMEPRAZOLE [Concomitant]
  4. OMEPRAZOLE [Concomitant]
     Indication: GASTROOESOPHAGEAL REFLUX DISEASE
     Dosage: 20 MG, 1X/DAY
  5. PROVERA [Suspect]
     Indication: MENORRHAGIA
     Dosage: UNK
     Route: 048
  6. HYOSCYAMINE [Concomitant]
     Indication: GASTROOESOPHAGEAL REFLUX DISEASE
     Dosage: 0.125 MG, 1X/DAY
  7. HYOSCYAMINE [Concomitant]
     Indication: IRRITABLE BOWEL SYNDROME
  8. BACTROBAN [Concomitant]
     Indication: EPISTAXIS
     Dosage: UNK, AS NEEDED
     Route: 045
  9. OMEPRAZOLE [Concomitant]
     Indication: IRRITABLE BOWEL SYNDROME
  10. HYOSCYAMINE [Concomitant]

REACTIONS (16)
  - DIZZINESS [None]
  - MUSCLE SPASMS [None]
  - ARTHRALGIA [None]
  - DRY EYE [None]
  - DRUG INEFFECTIVE [None]
  - PALPITATIONS [None]
  - MUSCULOSKELETAL STIFFNESS [None]
  - ABDOMINAL DISTENSION [None]
  - DYSPEPSIA [None]
  - ASTHENIA [None]
  - FATIGUE [None]
  - ENDOMETRIAL HYPERTROPHY [None]
  - MALAISE [None]
  - HYPERPLASIA [None]
  - CHEST DISCOMFORT [None]
  - VERTIGO [None]
